FAERS Safety Report 4841055-X (Version None)
Quarter: 2005Q4

REPORT INFORMATION
  Report Type: 
  Country: None (occurrence: None)
  Receive Date: 20051130
  Receipt Date: 20050909
  Transmission Date: 20060501
  Serious: No
  Sender: FDA-Public Use
  Company Number: US-BRISTOL-MYERS SQUIBB COMPANY-13105317

PATIENT
  Age: 19 Year
  Sex: Female
  Weight: 47 kg

DRUGS (4)
  1. ABILIFY [Suspect]
     Indication: BIPOLAR I DISORDER
     Dosage: INTERRUPTED FOR 3 WEEKS; RESTARTED AT 15 MG DAILY ON 12-OCT-2005
  2. ABILIFY [Suspect]
     Indication: PSYCHOTIC DISORDER
     Dosage: INTERRUPTED FOR 3 WEEKS; RESTARTED AT 15 MG DAILY ON 12-OCT-2005
  3. HALDOL [Concomitant]
  4. DEPAKOTE [Concomitant]

REACTIONS (7)
  - AGITATION [None]
  - HEADACHE [None]
  - INSOMNIA [None]
  - MENSTRUATION IRREGULAR [None]
  - NIGHTMARE [None]
  - SOMNOLENCE [None]
  - VISION BLURRED [None]
